FAERS Safety Report 9890878 (Version 1)
Quarter: 2014Q1

REPORT INFORMATION
  Report Type: Spontaneous
  Country: US (occurrence: US)
  Receive Date: 20140212
  Receipt Date: 20140212
  Transmission Date: 20141002
  Serious: No
  Sender: FDA-Public Use
  Company Number: US-BAYER-2014-017810

PATIENT
  Age: 63 Year
  Sex: Male
  Weight: 79 kg

DRUGS (3)
  1. ALEVE CAPLET [Suspect]
     Indication: PAIN PROPHYLAXIS
     Dosage: 1-2 DF, PRN
     Route: 048
  2. ONE A DAY MEN^S PRO EDGE [Concomitant]
  3. FISH OIL [Concomitant]

REACTIONS (1)
  - Intentional drug misuse [None]
